FAERS Safety Report 17360218 (Version 17)
Quarter: 2022Q1

REPORT INFORMATION
  Report Type: Spontaneous
  Country: JP (occurrence: JP)
  Receive Date: 20200203
  Receipt Date: 20220207
  Transmission Date: 20220423
  Serious: Yes (Hospitalization, Other)
  Sender: FDA-Public Use
  Company Number: JP-ONO-2019JP024100

PATIENT
  Age: 53 Year
  Sex: Female
  Weight: 43.7 kg

DRUGS (34)
  1. PARSABIV [Suspect]
     Active Substance: ETELCALCETIDE HYDROCHLORIDE
     Indication: Hyperparathyroidism secondary
     Dosage: 5 MILLIGRAM, 3 TIMES/WK
     Route: 010
     Dates: start: 20190520
  2. OXAROL [Concomitant]
     Active Substance: MAXACALCITOL
     Indication: Product used for unknown indication
     Dosage: 5 MICROGRAM, 3 TIMES/WK
     Route: 042
     Dates: start: 20181224, end: 20190614
  3. OXAROL [Concomitant]
     Active Substance: MAXACALCITOL
     Dosage: 5 MICROGRAM, 2 TIMES/WK
     Route: 042
     Dates: start: 20190617, end: 20190712
  4. OXAROL [Concomitant]
     Active Substance: MAXACALCITOL
     Dosage: 7.5 UG, QW
     Route: 042
     Dates: start: 20190619, end: 20190712
  5. OXAROL [Concomitant]
     Active Substance: MAXACALCITOL
     Dosage: 7.5 MICROGRAM, 2 TIMES/WK
     Route: 042
     Dates: start: 20190715, end: 20190726
  6. OXAROL [Concomitant]
     Active Substance: MAXACALCITOL
     Dosage: 5 MICROGRAM, QWK
     Route: 042
     Dates: start: 20190715, end: 20190726
  7. OXAROL [Concomitant]
     Active Substance: MAXACALCITOL
     Dosage: 7.5 MICROGRAM, 3 TIMES/WK
     Route: 042
     Dates: start: 20190729, end: 20190823
  8. OXAROL [Concomitant]
     Active Substance: MAXACALCITOL
     Dosage: 10 MICROGRAM, QWK
     Route: 042
     Dates: start: 20190826, end: 20191011
  9. OXAROL [Concomitant]
     Active Substance: MAXACALCITOL
     Dosage: 7.5 MICROGRAM, 2 TIMES/WK
     Route: 042
     Dates: start: 20190826, end: 20191011
  10. OXAROL [Concomitant]
     Active Substance: MAXACALCITOL
     Dosage: 10 MICROGRAM, 2 TIMES/WK
     Route: 042
     Dates: start: 20191014, end: 20191127
  11. OXAROL [Concomitant]
     Active Substance: MAXACALCITOL
     Dosage: 7.5 MICROGRAM, QWK
     Route: 042
     Dates: start: 20191014, end: 20191127
  12. OXAROL [Concomitant]
     Active Substance: MAXACALCITOL
     Dosage: 10 MICROGRAM, 3 TIMES/WK
     Route: 042
     Dates: start: 20191129, end: 20210205
  13. BIXALOMER [Concomitant]
     Active Substance: BIXALOMER
     Dosage: 5250 MILLIGRAM, QD
     Route: 065
     Dates: end: 20191106
  14. BIXALOMER [Concomitant]
     Active Substance: BIXALOMER
     Dosage: 3000 MILLIGRAM, QD
     Route: 065
     Dates: start: 20191107
  15. MIRCERA [Concomitant]
     Active Substance: METHOXY POLYETHYLENE GLYCOL-EPOETIN BETA
     Dosage: 150 MICROGRAM, Q4WK
     Route: 065
     Dates: end: 20190603
  16. MIRCERA [Concomitant]
     Active Substance: METHOXY POLYETHYLENE GLYCOL-EPOETIN BETA
     Dosage: 200 MICROGRAM, Q4WK
     Route: 065
     Dates: start: 20190617, end: 20191021
  17. MIRCERA [Concomitant]
     Active Substance: METHOXY POLYETHYLENE GLYCOL-EPOETIN BETA
     Dosage: 250 MICROGRAM, Q4WK
     Route: 065
     Dates: start: 20191104, end: 20200120
  18. IRON SUCROSE [Concomitant]
     Active Substance: IRON SUCROSE
     Dosage: 40 MILLIGRAM, QWK
     Route: 065
     Dates: end: 20190501
  19. IRON SUCROSE [Concomitant]
     Active Substance: IRON SUCROSE
     Dosage: 40 MILLIGRAM, QWK
     Route: 065
     Dates: start: 20191107, end: 20200212
  20. IRON SUCROSE [Concomitant]
     Active Substance: IRON SUCROSE
     Dosage: 40 MILLIGRAM, QWK
     Route: 065
     Dates: start: 20200318, end: 20200603
  21. IRON SUCROSE [Concomitant]
     Active Substance: IRON SUCROSE
     Dosage: 40 MILLIGRAM, QWK
     Route: 065
     Dates: start: 20200617, end: 20200902
  22. IRON SUCROSE [Concomitant]
     Active Substance: IRON SUCROSE
     Dosage: 40 MILLIGRAM, QWK
     Route: 065
     Dates: start: 20201104, end: 20210120
  23. IRON SUCROSE [Concomitant]
     Active Substance: IRON SUCROSE
     Dosage: 40 MILLIGRAM, QWK
     Route: 065
     Dates: start: 20210414, end: 20210630
  24. IRON SUCROSE [Concomitant]
     Active Substance: IRON SUCROSE
     Dosage: 40 MILLIGRAM, QWK
     Route: 065
     Dates: start: 20210922
  25. ROXADUSTAT [Concomitant]
     Active Substance: ROXADUSTAT
     Dosage: 300 MILLIGRAM, QWK
     Route: 048
     Dates: start: 20200203, end: 20200313
  26. ROXADUSTAT [Concomitant]
     Active Substance: ROXADUSTAT
     Dosage: 360 MILLIGRAM, QWK
     Route: 048
     Dates: start: 20200316, end: 20200904
  27. ROXADUSTAT [Concomitant]
     Active Substance: ROXADUSTAT
     Dosage: 300 MILLIGRAM, QWK
     Route: 048
     Dates: start: 20200907, end: 20201009
  28. ROXADUSTAT [Concomitant]
     Active Substance: ROXADUSTAT
     Dosage: 210 MILLIGRAM, QWK
     Route: 048
     Dates: start: 20201012, end: 20201120
  29. ROXADUSTAT [Concomitant]
     Active Substance: ROXADUSTAT
     Dosage: 300 MILLIGRAM, QWK
     Route: 048
     Dates: start: 20201123, end: 20201225
  30. ROXADUSTAT [Concomitant]
     Active Substance: ROXADUSTAT
     Dosage: 210 MILLIGRAM, QWK
     Route: 048
     Dates: start: 20201228, end: 20210219
  31. ROXADUSTAT [Concomitant]
     Active Substance: ROXADUSTAT
     Dosage: 150 MILLIGRAM, QWK
     Route: 048
     Dates: start: 20210222, end: 20210423
  32. ROXADUSTAT [Concomitant]
     Active Substance: ROXADUSTAT
     Dosage: 210 MILLIGRAM, QWK
     Route: 048
     Dates: start: 20210426, end: 20210716
  33. ROXADUSTAT [Concomitant]
     Active Substance: ROXADUSTAT
     Dosage: 150 MILLIGRAM, QWK
     Route: 048
     Dates: start: 20210719, end: 20211001
  34. ROXADUSTAT [Concomitant]
     Active Substance: ROXADUSTAT
     Dosage: 210 MILLIGRAM, QWK
     Route: 048
     Dates: start: 20211004

REACTIONS (6)
  - Myocardial ischaemia [Recovered/Resolved]
  - Vascular graft infection [Recovered/Resolved]
  - Shunt stenosis [Recovered/Resolved]
  - Shunt stenosis [Recovered/Resolved]
  - Shunt stenosis [Recovered/Resolved]
  - Limb fracture [Recovering/Resolving]

NARRATIVE: CASE EVENT DATE: 20190624
